FAERS Safety Report 5931440-7 (Version None)
Quarter: 2008Q4

REPORT INFORMATION
  Report Type: 
  Country: None (occurrence: None)
  Receive Date: 20081024
  Receipt Date: 20081024
  Transmission Date: 20090506
  Serious: Yes (Death, Life-Threatening, Hospitalization, Other)
  Sender: FDA-Public Use
  Company Number: None

PATIENT
  Age: 60 Year
  Sex: Female

DRUGS (2)
  1. PRIALT INTRATHECAL SOLUTION 25 MCG/ML ELAN PHARMACEUTICALS [Suspect]
     Indication: BACK PAIN
     Dosage: ONCE IT
     Route: 037
     Dates: start: 20080727, end: 20080727
  2. PRIALT INTRATHECAL SOLUTION 25 MCG/ML ELAN PHARMACEUTICALS [Suspect]
     Indication: LUMBAR SPINAL STENOSIS
     Dosage: ONCE IT
     Route: 037
     Dates: start: 20080727, end: 20080727

REACTIONS (21)
  - ACIDOSIS [None]
  - ASPIRATION [None]
  - BRAIN DEATH [None]
  - CARDIAC ARREST [None]
  - CEREBRAL INFARCTION [None]
  - DECUBITUS ULCER [None]
  - EMBOLIC CEREBRAL INFARCTION [None]
  - FALL [None]
  - FUNGAL SKIN INFECTION [None]
  - HYPERCAPNIA [None]
  - INFECTED SKIN ULCER [None]
  - MYELITIS TRANSVERSE [None]
  - NERVOUS SYSTEM DISORDER [None]
  - PNEUMONIA [None]
  - REFUSAL OF TREATMENT BY PATIENT [None]
  - RESPIRATORY FAILURE [None]
  - TORSADE DE POINTES [None]
  - TRANSIENT ISCHAEMIC ATTACK [None]
  - URINARY TRACT INFECTION ENTEROCOCCAL [None]
  - VASCULITIS [None]
  - VENTRICULAR FIBRILLATION [None]
